FAERS Safety Report 5590206-0 (Version None)
Quarter: 2008Q1

REPORT INFORMATION
  Report Type: 
  Country: None (occurrence: None)
  Receive Date: 20080114
  Receipt Date: 20080110
  Transmission Date: 20080703
  Serious: Yes (Other)
  Sender: FDA-Public Use
  Company Number: US-ASTRAZENECA-2008UW00683

PATIENT
  Age: 74 Year
  Sex: Female
  Weight: 64.9 kg

DRUGS (3)
  1. ARIMIDEX [Suspect]
     Indication: BREAST CANCER
     Route: 048
  2. FOSAMAX [Concomitant]
  3. LIPITOR [Concomitant]

REACTIONS (2)
  - MACULAR DEGENERATION [None]
  - VISUAL DISTURBANCE [None]
